FAERS Safety Report 19475949 (Version 1)
Quarter: 2021Q2

REPORT INFORMATION
  Report Type: Spontaneous
  Country: FR (occurrence: FR)
  Receive Date: 20210630
  Receipt Date: 20210630
  Transmission Date: 20210717
  Serious: Yes (Other)
  Sender: FDA-Public Use
  Company Number: FR-TEVA-2021-FR-1926688

PATIENT
  Age: 34 Year
  Sex: Male

DRUGS (6)
  1. CHLORHYDRATE DE TRAMADOL [Suspect]
     Active Substance: TRAMADOL HYDROCHLORIDE
     Route: 065
  2. CANNABIS [Suspect]
     Active Substance: CANNABIS SATIVA SUBSP. INDICA TOP
     Route: 065
  3. RIVOTRIL [Suspect]
     Active Substance: CLONAZEPAM
     Route: 065
  4. VALIUM [Suspect]
     Active Substance: DIAZEPAM
     Route: 065
  5. SERESTA [Suspect]
     Active Substance: OXAZEPAM
     Route: 065
  6. LYRICA [Suspect]
     Active Substance: PREGABALIN
     Route: 065

REACTIONS (3)
  - Performance enhancing product use [Unknown]
  - Drug dependence [Not Recovered/Not Resolved]
  - Coma [Recovered/Resolved]

NARRATIVE: CASE EVENT DATE: 2019
